FAERS Safety Report 8350304-5 (Version None)
Quarter: 2012Q2

REPORT INFORMATION
  Report Type: 
  Country: None (occurrence: None)
  Receive Date: 20120510
  Receipt Date: 20120508
  Transmission Date: 20120825
  Serious: Yes (Hospitalization)
  Sender: FDA-Public Use
  Company Number: ES-PFIZER INC-2012112665

PATIENT
  Age: 95 Year
  Sex: Female

DRUGS (6)
  1. ALDACTONE [Suspect]
     Dosage: 25 MG DAILY
     Route: 048
     Dates: start: 20110301, end: 20110811
  2. DIGOXIN [Interacting]
     Indication: ATRIAL FIBRILLATION
     Dosage: 0.13 MG DAILY
     Route: 048
     Dates: start: 20061201, end: 20110811
  3. ASPIRIN [Concomitant]
     Indication: PROPHYLAXIS
     Dosage: 150 MG DAILY
     Route: 048
     Dates: end: 20110811
  4. TELMISARTAN [Interacting]
     Dosage: 20 MG DAILY
     Route: 048
     Dates: start: 20110401, end: 20110811
  5. FUROSEMIDE [Interacting]
     Dosage: 20 MG DAILY
     Route: 048
     Dates: start: 20061201, end: 20110822
  6. CLOPIDOGREL [Concomitant]
     Indication: PROPHYLAXIS
     Dosage: 75 MG DAILY
     Route: 048
     Dates: start: 20081001, end: 20110811

REACTIONS (3)
  - DRUG INTERACTION [None]
  - BRADYARRHYTHMIA [None]
  - TOXICITY TO VARIOUS AGENTS [None]
